FAERS Safety Report 7148957-2 (Version None)
Quarter: 2010Q4

REPORT INFORMATION
  Report Type: 
  Country: None (occurrence: None)
  Receive Date: 20101209
  Receipt Date: 20101202
  Transmission Date: 20110411
  Serious: Yes (Life-Threatening, Hospitalization)
  Sender: FDA-Public Use
  Company Number: B0688025A

PATIENT
  Sex: Female

DRUGS (1)
  1. ZINACEF [Suspect]
     Route: 042
     Dates: start: 20101126

REACTIONS (6)
  - BLOOD PRESSURE IMMEASURABLE [None]
  - FEELING COLD [None]
  - PALLOR [None]
  - RESPIRATORY DISORDER [None]
  - URINARY INCONTINENCE [None]
  - VOMITING [None]
